FAERS Safety Report 6859389-6 (Version None)
Quarter: 2010Q3

REPORT INFORMATION
  Report Type: 
  Country: None (occurrence: None)
  Receive Date: 20100719
  Receipt Date: 20080225
  Transmission Date: 20110219
  Serious: No
  Sender: FDA-Public Use
  Company Number: US-PFIZER INC-2008019468

PATIENT
  Sex: Female

DRUGS (9)
  1. CHANTIX [Suspect]
     Indication: SMOKING CESSATION THERAPY
     Route: 048
     Dates: start: 20070101, end: 20070101
  2. PAXIL [Concomitant]
  3. LUNESTA [Concomitant]
     Indication: SLEEP DISORDER
  4. LIPITOR [Concomitant]
  5. LEVOTHYROXINE SODIUM [Concomitant]
     Indication: HYPOTHYROIDISM
  6. FENTANYL [Concomitant]
  7. NORCO [Concomitant]
  8. PENTOXIFYLLINE [Concomitant]
     Indication: POOR PERIPHERAL CIRCULATION
  9. PLAVIX [Concomitant]
     Indication: CARDIAC DISORDER

REACTIONS (1)
  - DRUG INEFFECTIVE [None]
